FAERS Safety Report 6469127-7 (Version None)
Quarter: 2009Q4

REPORT INFORMATION
  Report Type: 
  Country: None (occurrence: None)
  Receive Date: 20091203
  Receipt Date: 20071212
  Transmission Date: 20100525
  Serious: Yes (Hospitalization)
  Sender: FDA-Public Use
  Company Number: US-ELI_LILLY_AND_COMPANY-US200708001059

PATIENT
  Sex: Male
  Weight: 122.45 kg

DRUGS (7)
  1. ZYPREXA [Suspect]
     Dosage: 5 MG, UNK
     Dates: start: 19990527, end: 20050331
  2. ZYPREXA [Suspect]
     Dosage: 10 MG, UNK
     Dates: start: 19990527, end: 20050331
  3. ZYPREXA [Suspect]
     Dosage: 2.5 MG, UNK
     Dates: start: 20020731, end: 20021219
  4. ZYPREXA [Suspect]
     Dosage: 5 MG, UNK
     Dates: start: 20020731, end: 20021219
  5. ZYPREXA [Suspect]
     Dosage: 20 MG, UNK
     Dates: start: 20050820
  6. RISPERDAL [Concomitant]
     Dates: start: 20060331, end: 20060915
  7. PROZAC [Concomitant]
     Dates: start: 19990603

REACTIONS (4)
  - GLUCOSE TOLERANCE IMPAIRED [None]
  - HYPERGLYCAEMIA [None]
  - STENT PLACEMENT [None]
  - WEIGHT INCREASED [None]
